FAERS Safety Report 10513661 (Version 1)
Quarter: 2014Q4

REPORT INFORMATION
  Report Type: Report from Study
  Country: US (occurrence: US)
  Receive Date: 20141013
  Receipt Date: 20141013
  Transmission Date: 20150528
  Serious: Yes (Life-Threatening, Hospitalization, Other)
  Sender: FDA-Public Use
  Company Number: US-ASTRAZENECA-2014SE74549

PATIENT
  Age: 76 Year
  Sex: Female
  Weight: 79.4 kg

DRUGS (18)
  1. HYDROCODONE [Concomitant]
     Active Substance: HYDROCODONE
     Indication: PAIN
     Route: 048
  2. CRESTOR [Suspect]
     Active Substance: ROSUVASTATIN CALCIUM
     Indication: BLOOD CHOLESTEROL INCREASED
     Route: 048
  3. VITAMIN D3 [Concomitant]
     Active Substance: CHOLECALCIFEROL
     Indication: VITAMIN SUPPLEMENTATION
  4. EFFEXOR [Concomitant]
     Active Substance: VENLAFAXINE HYDROCHLORIDE
     Indication: NERVOUS SYSTEM DISORDER
     Route: 048
  5. INDUR [Concomitant]
     Indication: CARDIAC DISORDER
     Route: 048
  6. SPIRIVA [Concomitant]
     Active Substance: TIOTROPIUM BROMIDE MONOHYDRATE
     Indication: LUNG DISORDER
  7. NEXIUM [Suspect]
     Active Substance: ESOMEPRAZOLE MAGNESIUM
     Indication: GASTROOESOPHAGEAL REFLUX DISEASE
     Route: 048
     Dates: start: 201408
  8. RESTORIL [Concomitant]
     Active Substance: TEMAZEPAM
     Indication: INSOMNIA
     Route: 048
  9. ASPIRIN. [Concomitant]
     Active Substance: ASPIRIN
     Route: 048
  10. SYMBICORT [Suspect]
     Active Substance: BUDESONIDE\FORMOTEROL FUMARATE DIHYDRATE
     Indication: CHRONIC OBSTRUCTIVE PULMONARY DISEASE
     Dosage: 3609 MEQ, TWO TIMES A DAY
     Route: 055
     Dates: start: 201408
  11. DIAVAN HTC [Concomitant]
     Indication: DIURETIC THERAPY
     Route: 048
  12. OMEGA 360 FISH OIL [Concomitant]
     Indication: VITAMIN SUPPLEMENTATION
     Route: 048
  13. DILLAPENER ER [Concomitant]
     Indication: CARDIAC DISORDER
     Route: 048
     Dates: start: 2014
  14. TRAGSDON [Concomitant]
     Indication: AGITATION
     Route: 048
  15. ROBITUSSIN (GUAIFENESIN) [Concomitant]
     Active Substance: GUAIFENESIN
     Indication: SECRETION DISCHARGE
     Route: 048
  16. LASIX [Concomitant]
     Active Substance: FUROSEMIDE
     Route: 048
  17. POTASSIUM [Concomitant]
     Active Substance: POTASSIUM
     Indication: SUPPORTIVE CARE
     Route: 048
  18. VITAMIN B COMPLEX [Concomitant]
     Active Substance: CYANOCOBALAMIN\DEXPANTHENOL\NIACINAMIDE\PYRIDOXINE HYDROCHLORIDE\RIBOFLAVIN 5^-PHOSPHATE SODIUM\THIAMINE HYDROCHLORIDE\VITAMIN B COMPLEX
     Indication: VITAMIN SUPPLEMENTATION
     Dosage: 1 OUNCE DAILY
     Route: 058

REACTIONS (21)
  - Pneumonia [Recovered/Resolved]
  - Lung neoplasm malignant [Not Recovered/Not Resolved]
  - Diabetes mellitus inadequate control [Unknown]
  - Asthenia [None]
  - Abasia [Recovered/Resolved]
  - Radiation pneumonitis [Recovered/Resolved]
  - Heart rate increased [Unknown]
  - Diabetes mellitus [Not Recovered/Not Resolved]
  - Eye disorder [Unknown]
  - Fall [Unknown]
  - Influenza [Recovered/Resolved]
  - Neuropathy peripheral [Not Recovered/Not Resolved]
  - Memory impairment [Recovered/Resolved]
  - Muscle spasms [Unknown]
  - Pulmonary thrombosis [Recovered/Resolved]
  - Dyspnoea [Not Recovered/Not Resolved]
  - Cardiac arrest [Recovered/Resolved]
  - Spinal cord infection [Recovered/Resolved]
  - Intervertebral disc protrusion [Recovered/Resolved]
  - Respiratory arrest [Unknown]
  - Fatigue [Not Recovered/Not Resolved]

NARRATIVE: CASE EVENT DATE: 2005
